FAERS Safety Report 4967007-7 (Version None)
Quarter: 2006Q1

REPORT INFORMATION
  Report Type: 
  Country: None (occurrence: None)
  Receive Date: 20060201
  Receipt Date: 20051227
  Transmission Date: 20060701
  Serious: No
  Sender: FDA-Public Use
  Company Number: 2005PV006286

PATIENT
  Age: 61 Year
  Sex: Male
  Weight: 95.2554 kg

DRUGS (4)
  1. BYETTA [Suspect]
     Indication: DIABETES MELLITUS NON-INSULIN-DEPENDENT
     Dosage: 5 MCG; BID; SC
     Route: 058
     Dates: start: 20051206
  2. METFORMIN [Concomitant]
  3. GLYBURIDE [Concomitant]
  4. NOVOLIN 70/30 [Concomitant]

REACTIONS (6)
  - ABDOMINAL DISTENSION [None]
  - BLOOD GLUCOSE INCREASED [None]
  - CHILLS [None]
  - CONSTIPATION [None]
  - INFLUENZA [None]
  - PYREXIA [None]
